FAERS Safety Report 9631741 (Version 1)
Quarter: 2013Q4

REPORT INFORMATION
  Report Type: Spontaneous
  Country: US (occurrence: US)
  Receive Date: 20131018
  Receipt Date: 20131018
  Transmission Date: 20140711
  Serious: Yes (Other)
  Sender: FDA-Public Use
  Company Number: US-PFIZER INC-2013291963

PATIENT
  Age: 8 Year
  Sex: Male

DRUGS (6)
  1. PHENYTOIN SODIUM [Suspect]
     Indication: CONVULSION
     Dosage: UNK
  2. PHENYTOIN SODIUM [Suspect]
     Dosage: 150 MG, DAILY
  3. CHLORPROMAZINE [Suspect]
     Indication: VOMITING
     Dosage: UNK
  4. ETHOSUXIMIDE [Concomitant]
     Indication: CONVULSION
     Dosage: UNK
  5. PHENOBARBITAL [Concomitant]
     Indication: CONVULSION
     Dosage: 30 MG, DAILY
  6. PRIMIDONE [Concomitant]
     Indication: CONVULSION
     Dosage: UNK

REACTIONS (9)
  - Toxicity to various agents [Recovered/Resolved]
  - Anticonvulsant drug level above therapeutic [Unknown]
  - Faecaloma [Unknown]
  - Lethargy [Recovered/Resolved]
  - Nystagmus [Recovered/Resolved]
  - Dysarthria [Recovered/Resolved]
  - Ataxia [Recovered/Resolved]
  - Gait disturbance [Recovered/Resolved]
  - Hypokinesia [Recovered/Resolved]
